FAERS Safety Report 12907742 (Version 2)
Quarter: 2017Q1

REPORT INFORMATION
  Report Type: Spontaneous
  Country: US (occurrence: US)
  Receive Date: 20161103
  Receipt Date: 20170104
  Transmission Date: 20170428
  Serious: Yes (Hospitalization)
  Sender: FDA-Public Use
  Company Number: US-OTSUKA-2016_025239

PATIENT
  Age: 40 Year
  Sex: Male

DRUGS (1)
  1. ABILIFY MAINTENA [Suspect]
     Active Substance: ARIPIPRAZOLE
     Indication: PRODUCT USED FOR UNKNOWN INDICATION
     Dosage: UNK
     Route: 065

REACTIONS (7)
  - Abnormal behaviour [Unknown]
  - Anger [Unknown]
  - Verbal abuse [Unknown]
  - Imprisonment [Recovered/Resolved]
  - Dissociative identity disorder [Unknown]
  - Treatment noncompliance [Unknown]
  - Mood altered [Unknown]
